FAERS Safety Report 20264557 (Version 2)
Quarter: 2022Q1

REPORT INFORMATION
  Report Type: Spontaneous
  Country: US (occurrence: US)
  Receive Date: 20211231
  Receipt Date: 20220114
  Transmission Date: 20220423
  Serious: Yes (Death, Life-Threatening, Other)
  Sender: FDA-Public Use
  Company Number: US-GW PHARMA-202112USGW06433

PATIENT

DRUGS (1)
  1. EPIDIOLEX [Suspect]
     Active Substance: CANNABIDIOL
     Indication: Seizure
     Dosage: 800 MILLIGRAM, BID
     Route: 048
     Dates: start: 201901

REACTIONS (4)
  - Thrombosis [Unknown]
  - Cardiac arrest [Fatal]
  - COVID-19 [Unknown]
  - Immobile [Unknown]

NARRATIVE: CASE EVENT DATE: 20211101
